FAERS Safety Report 15569700 (Version 3)
Quarter: 2019Q1

REPORT INFORMATION
  Report Type: Spontaneous
  Country: US (occurrence: US)
  Receive Date: 20181031
  Receipt Date: 20190211
  Transmission Date: 20190417
  Serious: No
  Sender: FDA-Public Use
  Company Number: US-PFIZER INC-2018433973

PATIENT
  Age: 48 Year
  Sex: Female

DRUGS (3)
  1. VFEND [Suspect]
     Active Substance: VORICONAZOLE
     Dosage: TAKE ONE 200 MG TABLET + TWO 50 MG TABS BID
  2. VFEND [Suspect]
     Active Substance: VORICONAZOLE
     Dosage: 50 MG, UNK
  3. VFEND [Suspect]
     Active Substance: VORICONAZOLE
     Dosage: 200 MG, UNK

REACTIONS (2)
  - Chest pain [Unknown]
  - Fungal infection [Unknown]
